FAERS Safety Report 16120399 (Version 1)
Quarter: 2019Q1

REPORT INFORMATION
  Report Type: Spontaneous
  Country: VE (occurrence: VE)
  Receive Date: 20190326
  Receipt Date: 20190326
  Transmission Date: 20190418
  Serious: Yes (Other)
  Sender: FDA-Public Use
  Company Number: PHHY2019VE066899

PATIENT
  Sex: Male

DRUGS (1)
  1. GLIVEC [Suspect]
     Active Substance: IMATINIB MESYLATE
     Indication: CHRONIC MYELOID LEUKAEMIA
     Dosage: 400 MG, UNK (4 OF 100 MG)
     Route: 065

REACTIONS (3)
  - Polycythaemia vera [Unknown]
  - Therapeutic response decreased [Unknown]
  - Laboratory test abnormal [Unknown]
